FAERS Safety Report 4423954-6 (Version None)
Quarter: 2004Q3

REPORT INFORMATION
  Report Type: 
  Country: None (occurrence: None)
  Receive Date: 20040812
  Receipt Date: 20040802
  Transmission Date: 20050211
  Serious: Yes (Hospitalization)
  Sender: FDA-Public Use
  Company Number: US-JNJFOC-20040301620

PATIENT
  Sex: Female

DRUGS (11)
  1. BLINDED; INFLIXIMAB, RECOMBINANT [Suspect]
     Route: 042
  2. BLINDED; INFLIXIMAB, RECOMBINANT [Suspect]
     Route: 042
  3. PLACEBO [Suspect]
     Route: 042
  4. PLACEBO [Suspect]
     Route: 042
  5. PREDNISOLONE [Concomitant]
     Route: 049
  6. AZATHIOPRINE [Concomitant]
     Route: 049
  7. PAXIL [Concomitant]
     Indication: DEPRESSION
     Route: 049
  8. IMODIUM [Concomitant]
     Route: 049
  9. CALCIUM CITRATE [Concomitant]
     Indication: NUTRITIONAL SUPPORT
     Route: 049
  10. FLEETS ENEMA [Concomitant]
     Route: 054
  11. FLEETS ENEMA [Concomitant]
     Route: 054

REACTIONS (6)
  - BLOOD MAGNESIUM ABNORMAL [None]
  - BLOOD POTASSIUM NORMAL [None]
  - COLITIS ULCERATIVE [None]
  - CONDITION AGGRAVATED [None]
  - IRON DEFICIENCY ANAEMIA [None]
  - MUSCLE CRAMP [None]
